FAERS Safety Report 5449672-3 (Version None)
Quarter: 2007Q3

REPORT INFORMATION
  Report Type: 
  Country: None (occurrence: None)
  Receive Date: 20070910
  Receipt Date: 20070910
  Transmission Date: 20080115
  Serious: Yes (Other)
  Sender: FDA-Public Use
  Company Number: None

PATIENT
  Age: 23 Year
  Sex: Female
  Weight: 42.7 kg

DRUGS (9)
  1. CEFEPIME [Suspect]
     Indication: URINARY TRACT INFECTION
     Dosage: 1G IV DAILY
     Route: 042
     Dates: start: 20070904, end: 20070905
  2. TPN [Concomitant]
  3. PROMETHAZINE [Concomitant]
  4. PREVACID [Concomitant]
  5. BUSPAR [Concomitant]
  6. ACIDOPHILIS [Concomitant]
  7. AMBIEN [Concomitant]
  8. TYLENOL (CAPLET) [Concomitant]
  9. M.V.I. [Concomitant]

REACTIONS (3)
  - COLD SWEAT [None]
  - HYPERHIDROSIS [None]
  - SYNCOPE [None]
